FAERS Safety Report 5302337-0 (Version None)
Quarter: 2007Q2

REPORT INFORMATION
  Report Type: 
  Country: None (occurrence: None)
  Receive Date: 20070405
  Receipt Date: 20070326
  Transmission Date: 20071010
  Serious: Yes (Hospitalization)
  Sender: FDA-Public Use
  Company Number: 200711751

PATIENT
  Age: 41 Year
  Sex: Female

DRUGS (2)
  1. SANDOGLOBULIN [Suspect]
     Indication: IDIOPATHIC THROMBOCYTOPENIC PURPURA
     Dates: start: 20060328, end: 20060331
  2. CORTICOTHERAPY [Concomitant]

REACTIONS (11)
  - CYTOMEGALOVIRUS INFECTION [None]
  - HEADACHE [None]
  - LUMBAR PUNCTURE ABNORMAL [None]
  - MENINGITIS [None]
  - MENINGITIS BACTERIAL [None]
  - NAUSEA [None]
  - PHONOPHOBIA [None]
  - PHOTOPHOBIA [None]
  - PLATELET COUNT DECREASED [None]
  - RED BLOOD CELL SEDIMENTATION RATE ABNORMAL [None]
  - VOMITING [None]
